FAERS Safety Report 8929232 (Version 2)
Quarter: 2013Q1

REPORT INFORMATION
  Report Type: Spontaneous
  Country: GB (occurrence: GB)
  Receive Date: 20121127
  Receipt Date: 20130102
  Transmission Date: 20140127
  Serious: Yes (Other)
  Sender: FDA-Public Use
  Company Number: GB-VERTEX PHARMACEUTICAL INC.-2012-025213

PATIENT
  Age: 51 Year
  Sex: Male
  Weight: 93.5 kg

DRUGS (4)
  1. INCIVO [Suspect]
     Indication: PRODUCT USED FOR UNKNOWN INDICATION
     Dosage: 750 MG, TID
     Route: 048
     Dates: start: 20121028
  2. INCIVO [Suspect]
     Dosage: DOSAGE FORM: TABLET
     Route: 048
     Dates: start: 20121028
  3. PEG INTERFERON [Concomitant]
     Indication: PRODUCT USED FOR UNKNOWN INDICATION
     Dosage: 180 ?G, QW
     Route: 058
     Dates: start: 20121028
  4. RIBAVIRIN [Concomitant]
     Indication: PRODUCT USED FOR UNKNOWN INDICATION
     Dosage: 1200 MG, UNK
     Route: 048
     Dates: start: 20121028

REACTIONS (2)
  - Pharyngeal oedema [Unknown]
  - Swollen tongue [Recovered/Resolved]
